FAERS Safety Report 6201502-8 (Version None)
Quarter: 2009Q2

REPORT INFORMATION
  Report Type: 
  Country: None (occurrence: None)
  Receive Date: 20090526
  Receipt Date: 20090518
  Transmission Date: 20091009
  Serious: Yes (Other)
  Sender: FDA-Public Use
  Company Number: PHBS2008NO01780

PATIENT
  Sex: Female

DRUGS (4)
  1. ZOMETA [Suspect]
     Indication: MULTIPLE MYELOMA
     Dosage: 4 MG, QMO
     Dates: start: 20070213, end: 20070801
  2. PREDNISOLONE [Concomitant]
     Indication: MULTIPLE MYELOMA
     Dosage: 20 MG/D
     Route: 048
     Dates: start: 20070212, end: 20070415
  3. DEXAMETHASONE 4MG TAB [Concomitant]
     Indication: MULTIPLE MYELOMA
     Dosage: UNK, BIW
     Dates: start: 20070612, end: 20070913
  4. VELCADE [Concomitant]
     Indication: MULTIPLE MYELOMA
     Dosage: 1 DF, BIW
     Route: 042
     Dates: start: 20070612, end: 20070913

REACTIONS (2)
  - OSTEONECROSIS [None]
  - TOOTH EXTRACTION [None]
